FAERS Safety Report 5881585-5 (Version None)
Quarter: 2008Q3

REPORT INFORMATION
  Report Type: 
  Country: None (occurrence: None)
  Receive Date: 20080912
  Receipt Date: 20080702
  Transmission Date: 20090109
  Serious: No
  Sender: FDA-Public Use
  Company Number: US-ABBOTT-08P-163-0460721-00

PATIENT
  Sex: Female

DRUGS (1)
  1. HUMIRA [Suspect]
     Indication: CROHN'S DISEASE
     Route: 058
     Dates: start: 20080311

REACTIONS (11)
  - ARTHRALGIA [None]
  - BACK PAIN [None]
  - CONSTIPATION [None]
  - FATIGUE [None]
  - GENITAL HAEMORRHAGE [None]
  - JOINT SWELLING [None]
  - MENSTRUAL DISORDER [None]
  - PERIARTICULAR DISORDER [None]
  - PYREXIA [None]
  - SINUS HEADACHE [None]
  - SINUS OPERATION [None]
